FAERS Safety Report 25454065 (Version 1)
Quarter: 2025Q2

REPORT INFORMATION
  Report Type: Spontaneous
  Country: US (occurrence: US)
  Receive Date: 20250619
  Receipt Date: 20250619
  Transmission Date: 20250716
  Serious: No
  Sender: Haleon PLC
  Company Number: US-HALEON-2247810

PATIENT
  Age: 65 Year
  Sex: Male

DRUGS (2)
  1. NICODERM CQ [Suspect]
     Active Substance: NICOTINE
     Indication: Smoking cessation therapy
  2. NICODERM CQ [Suspect]
     Active Substance: NICOTINE

REACTIONS (2)
  - Application site erythema [Unknown]
  - Application site swelling [Unknown]
